FAERS Safety Report 23424533 (Version 3)
Quarter: 2024Q2

REPORT INFORMATION
  Report Type: Report from Study
  Country: DE (occurrence: DE)
  Receive Date: 20240120
  Receipt Date: 20240502
  Transmission Date: 20240715
  Serious: Yes (Life-Threatening, Hospitalization, Other)
  Sender: FDA-Public Use
  Company Number: DE-Accord-400995

PATIENT
  Age: 75 Year
  Sex: Female

DRUGS (8)
  1. LEVETIRACETAM [Interacting]
     Active Substance: LEVETIRACETAM
     Indication: Product used for unknown indication
  2. METHOTREXATE [Interacting]
     Active Substance: METHOTREXATE
     Indication: Rheumatoid arthritis
  3. PANTOPRAZOLE [Interacting]
     Active Substance: PANTOPRAZOLE
     Indication: Product used for unknown indication
  4. TORSEMIDE [Interacting]
     Active Substance: TORSEMIDE
     Indication: Product used for unknown indication
  5. INDOMETHACIN [Concomitant]
     Active Substance: INDOMETHACIN
     Indication: Product used for unknown indication
  6. IRBESARTAN [Concomitant]
     Active Substance: IRBESARTAN
     Indication: Product used for unknown indication
  7. HYDROCHLOROTHIAZIDE [Concomitant]
     Active Substance: HYDROCHLOROTHIAZIDE
     Indication: Product used for unknown indication
  8. METHOTREXATE [Interacting]
     Active Substance: METHOTREXATE
     Indication: Rheumatoid arthritis

REACTIONS (4)
  - Myelosuppression [Recovered/Resolved]
  - Mucosal inflammation [Recovered/Resolved]
  - Sepsis [Recovered/Resolved]
  - Drug interaction [Unknown]
